FAERS Safety Report 9815640 (Version 3)
Quarter: 2016Q3

REPORT INFORMATION
  Report Type: Report from Study
  Country: US (occurrence: US)
  Receive Date: 20140114
  Receipt Date: 20160812
  Transmission Date: 20161109
  Serious: Yes (Life-Threatening, Other)
  Sender: FDA-Public Use
  Company Number: US-ROCHE-769962

PATIENT
  Age: 62 Year
  Sex: Male
  Weight: 89.4 kg

DRUGS (10)
  1. VISMODEGIB [Suspect]
     Active Substance: VISMODEGIB
     Route: 048
  2. VISMODEGIB [Suspect]
     Active Substance: VISMODEGIB
     Route: 048
  3. VISMODEGIB [Suspect]
     Active Substance: VISMODEGIB
     Route: 048
  4. CISPLATIN. [Suspect]
     Active Substance: CISPLATIN
     Indication: SMALL CELL LUNG CANCER
     Dosage: OVER 2 HOURS ON DAY 1 IN 21 DAY CYCLE, LAST DOSE : 14/DEC/2010
     Route: 042
     Dates: start: 20101121
  5. VISMODEGIB [Suspect]
     Active Substance: VISMODEGIB
     Route: 048
  6. VISMODEGIB [Suspect]
     Active Substance: VISMODEGIB
     Route: 048
  7. VISMODEGIB [Suspect]
     Active Substance: VISMODEGIB
     Route: 048
  8. VISMODEGIB [Suspect]
     Active Substance: VISMODEGIB
     Indication: SMALL CELL LUNG CANCER
     Dosage: 150 MG, QD, LAST DOSE:02/JAN/2011
     Route: 048
  9. VISMODEGIB [Suspect]
     Active Substance: VISMODEGIB
     Route: 048
  10. ETOPOSIDE. [Suspect]
     Active Substance: ETOPOSIDE
     Indication: SMALL CELL LUNG CANCER
     Dosage: OVER 2 HOURS ON DAY 1-3 IN 21 DAY CYCLE, LAST DOSE: 16/DEC/2010
     Route: 042

REACTIONS (5)
  - Neutrophil count decreased [Recovered/Resolved]
  - Hyponatraemia [Recovered/Resolved]
  - Hypophosphataemia [Recovered/Resolved]
  - Constipation [Recovered/Resolved]
  - White blood cell count decreased [Recovered/Resolved]

NARRATIVE: CASE EVENT DATE: 20101207
